FAERS Safety Report 7672044-8 (Version None)
Quarter: 2011Q3

REPORT INFORMATION
  Report Type: 
  Country: None (occurrence: None)
  Receive Date: 20110809
  Receipt Date: 20110725
  Transmission Date: 20111222
  Serious: Yes (Hospitalization, Other)
  Sender: FDA-Public Use
  Company Number: PHFR2011IE02232

PATIENT
  Sex: Female
  Weight: 88.9 kg

DRUGS (44)
  1. CLOZAPINE [Suspect]
     Dosage: 25 MG MANE + 62.5 MG NOCTE
     Route: 048
     Dates: start: 20040126
  2. CLOZAPINE [Suspect]
     Dosage: 12.5 MG MANE + 25 MG NOCTE
     Route: 048
  3. CLOZAPINE [Suspect]
     Dosage: UNK
     Route: 048
     Dates: start: 20060501
  4. VALPROIC ACID [Concomitant]
     Dosage: 1000 MG/DAY
     Route: 048
  5. CYMBALTA [Concomitant]
     Dosage: 120 MG/DAY
     Route: 048
     Dates: start: 20100101
  6. AKINETON [Concomitant]
     Dosage: 2 MG, TID
  7. RISPERIDONE [Concomitant]
     Dosage: 3 MG NOCTE
  8. VALPROATE SODIUM [Concomitant]
     Dosage: 600 MG MANE AND NOCTE AND 200 MG AT 6.00 PM
  9. CLOZAPINE [Suspect]
     Dosage: 175 MG
     Dates: start: 19971111
  10. CLOZAPINE [Suspect]
     Dosage: 112.5 MG/DAY
     Route: 048
  11. VALPROIC ACID [Concomitant]
     Dosage: 200 MG, BID
     Route: 048
  12. VALPROIC ACID [Concomitant]
     Dosage: 2.4 G
     Route: 048
     Dates: start: 20040126
  13. DIAZEPAM [Concomitant]
     Dosage: 5 MG, TID
  14. CLOZAPINE [Suspect]
     Dosage: 100 MG
     Route: 048
  15. CLOZAPINE [Suspect]
     Dosage: 25 MG MANE + 75 MG NOCTE
     Route: 048
  16. CLOZAPINE [Suspect]
     Dosage: 12.5 MG MANE + 75 MG NOCTE
     Route: 048
  17. AMISULPRIDE [Suspect]
     Indication: SCHIZOPHRENIA
     Dosage: 50 MG, BID
  18. AMISULPRIDE [Suspect]
     Dosage: 100 MG, BID
  19. CLOZAPINE [Suspect]
     Dosage: 50 MG/DAY
     Route: 048
     Dates: start: 19990407, end: 20040101
  20. CLOZAPINE [Suspect]
     Dosage: 25 MG, BID
     Route: 048
     Dates: start: 20040401, end: 20040501
  21. VALPROIC ACID [Concomitant]
     Dosage: 200 MG, BID
     Route: 048
     Dates: start: 19980407, end: 19981111
  22. VALPROIC ACID [Concomitant]
     Dosage: 1200 MG/DAY
     Route: 048
     Dates: start: 20040126
  23. CEFACLOR [Concomitant]
  24. DIAZEPAM [Concomitant]
     Dosage: 10 MG, TID
  25. CLOZAPINE [Suspect]
     Dosage: 25 MG, BID
     Route: 048
     Dates: start: 19980101, end: 20040101
  26. CLOZAPINE [Suspect]
     Dosage: 75 MG, UNK
     Route: 048
     Dates: start: 19981111
  27. CRESTOR [Concomitant]
     Dosage: 10 MG/DAY
     Route: 048
     Dates: start: 20090901
  28. SOLIAN [Concomitant]
     Dosage: 50 MG, BID
  29. SOLIAN [Concomitant]
     Dosage: 400 MG, BID
  30. RISPERIDONE [Concomitant]
     Dosage: 1 MG NOCTE
  31. CLOZAPINE [Suspect]
     Dosage: 250 MG/DAY
     Route: 048
     Dates: start: 19990830
  32. CLOZAPINE [Suspect]
     Dosage: 250 MG/DAY
     Route: 048
     Dates: start: 20040107
  33. CLOZAPINE [Suspect]
     Dosage: 75 MG/DAY
     Route: 048
  34. SOLIAN [Concomitant]
     Dosage: 200 MG MANE + 300 MG NOCTE
  35. VALPROATE SODIUM [Concomitant]
     Dosage: 200 MG, BID
     Dates: start: 19980407
  36. CLOZAPINE [Suspect]
     Dosage: 12.5 MG MANE + 50 MG NOCTE
     Route: 048
  37. AMISULPRIDE [Suspect]
     Dosage: 200 MG, BID
  38. VALPROIC ACID [Concomitant]
     Dosage: 1600 MG/DAY
     Route: 048
     Dates: start: 20040126
  39. DIAZEPAM [Concomitant]
     Dosage: 5 MG, BID
  40. CITALOPRAM HYDROBROMIDE [Concomitant]
     Dosage: 40 MG MANE
  41. RISPERIDONE [Concomitant]
     Dosage: 2 MG NOCTE
  42. DULOXETIME HYDROCHLORIDE [Concomitant]
     Dosage: 60 MG, UNK
  43. CLOZAPINE [Suspect]
     Dosage: 25 MG MANE + 100 MG NOCTE
     Route: 048
  44. CLOZAPINE [Suspect]
     Dosage: 100 MG/DAY
     Route: 048

REACTIONS (22)
  - LOSS OF CONSCIOUSNESS [None]
  - ASTHENIA [None]
  - DYSPHORIA [None]
  - SCHIZOPHRENIA [None]
  - SENSORY DISTURBANCE [None]
  - HYPERHIDROSIS [None]
  - DECREASED INTEREST [None]
  - BALANCE DISORDER [None]
  - DEPRESSION [None]
  - TREMOR [None]
  - CONVULSION [None]
  - GAIT DISTURBANCE [None]
  - DIZZINESS [None]
  - SLEEP DISORDER [None]
  - DEPRESSED MOOD [None]
  - EAR INFECTION [None]
  - PARANOIA [None]
  - INFLUENZA [None]
  - CONFUSIONAL STATE [None]
  - NAUSEA [None]
  - FALL [None]
  - DIARRHOEA [None]
